FAERS Safety Report 12294210 (Version 1)
Quarter: 2016Q2

REPORT INFORMATION
  Report Type: Spontaneous
  Country: US (occurrence: US)
  Receive Date: 20160422
  Receipt Date: 20160422
  Transmission Date: 20160815
  Serious: No
  Sender: FDA-Public Use
  Company Number: US-ASTRAZENECA-2016SE42282

PATIENT
  Sex: Female

DRUGS (1)
  1. NEXIUM 24HR [Suspect]
     Active Substance: ESOMEPRAZOLE MAGNESIUM
     Dosage: 22.3
     Route: 048

REACTIONS (6)
  - Malaise [Unknown]
  - Dysphagia [Unknown]
  - Product difficult to swallow [Unknown]
  - Drug administration error [Unknown]
  - Chest pain [Not Recovered/Not Resolved]
  - Anger [Unknown]
